FAERS Safety Report 4654695-8 (Version None)
Quarter: 2005Q2

REPORT INFORMATION
  Report Type: 
  Country: None (occurrence: None)
  Receive Date: 20050505
  Receipt Date: 20050505
  Transmission Date: 20051028
  Serious: Yes (Hospitalization)
  Sender: FDA-Public Use
  Company Number: None

PATIENT
  Sex: Male
  Weight: 60 kg

DRUGS (3)
  1. GEMCITABINE (1000 MG/M2, DAY 2 OF 28 DAY CYCLE BEG, CYCLE 2) [Suspect]
     Indication: HEPATIC NEOPLASM MALIGNANT
     Dosage: 1690 IV
     Route: 042
     Dates: start: 20050208, end: 20050223
  2. OXALIPLATIN (85 MG/M2, DAYS 2 OF 28 DAY CYCLE BEG, CYCLE 2)` [Suspect]
     Dosage: 144 IV
     Route: 042
     Dates: start: 20050208, end: 20050223
  3. BEVACIZUMAB (10 MG/KG DAYS 1 OF 28 DAY CYCLE) [Suspect]
     Indication: HEPATIC NEOPLASM MALIGNANT
     Dosage: 603 IV
     Route: 042
     Dates: start: 20050208, end: 20050222

REACTIONS (3)
  - DRUG TOXICITY [None]
  - PYREXIA [None]
  - WHITE BLOOD CELL COUNT INCREASED [None]
